FAERS Safety Report 23853207 (Version 1)
Quarter: 2024Q2

REPORT INFORMATION
  Report Type: Spontaneous
  Country: IT (occurrence: IT)
  Receive Date: 20240514
  Receipt Date: 20240514
  Transmission Date: 20240716
  Serious: Yes (Hospitalization)
  Sender: FDA-Public Use
  Company Number: IT-MYLANLABS-2024M1042636

PATIENT
  Age: 69 Year
  Sex: Female

DRUGS (12)
  1. CETIRIZINE [Suspect]
     Active Substance: CETIRIZINE HYDROCHLORIDE
     Indication: Breast disorder
     Dosage: 10 MILLIGRAM
     Route: 065
  2. CETIRIZINE [Suspect]
     Active Substance: CETIRIZINE HYDROCHLORIDE
     Indication: Erythema
  3. ARBUTIN [Concomitant]
     Active Substance: ARBUTIN
     Indication: Breast disorder
     Dosage: UNK
     Route: 065
  4. ARBUTIN [Concomitant]
     Active Substance: ARBUTIN
     Indication: Erythema
  5. BETAMETHASONE [Concomitant]
     Active Substance: BETAMETHASONE\BETAMETHASONE DIPROPIONATE
     Indication: Breast disorder
     Dosage: 1 MILLIGRAM
     Route: 065
  6. BETAMETHASONE [Concomitant]
     Active Substance: BETAMETHASONE\BETAMETHASONE DIPROPIONATE
     Indication: Erythema
     Dosage: UNK; UPTO 4 MG
     Route: 065
  7. COUMARIN [Concomitant]
     Active Substance: COUMARIN
     Indication: Breast disorder
     Dosage: UNK
     Route: 065
  8. COUMARIN [Concomitant]
     Active Substance: COUMARIN
     Indication: Erythema
  9. DIOSMIN [Concomitant]
     Active Substance: DIOSMIN
     Indication: Breast disorder
     Dosage: UNK
     Route: 065
  10. DIOSMIN [Concomitant]
     Active Substance: DIOSMIN
     Indication: Erythema
  11. COTRIMOXAZOLE [Concomitant]
     Active Substance: SULFAMETHOXAZOLE\TRIMETHOPRIM
     Indication: Breast disorder
     Dosage: UNK; TRIMETHOPRIM-SULFAMETHOXAZOLE 160/180 MG
     Route: 065
  12. COTRIMOXAZOLE [Concomitant]
     Active Substance: SULFAMETHOXAZOLE\TRIMETHOPRIM
     Indication: Erythema

REACTIONS (2)
  - Drug ineffective for unapproved indication [Unknown]
  - Off label use [Unknown]
